FAERS Safety Report 26122784 (Version 1)
Quarter: 2025Q4

REPORT INFORMATION
  Report Type: Spontaneous
  Country: CH (occurrence: CH)
  Receive Date: 20251204
  Receipt Date: 20251204
  Transmission Date: 20260118
  Serious: Yes (Hospitalization)
  Sender: TEVA
  Company Number: CH-TEVA-VS-3398204

PATIENT
  Age: 82 Year
  Sex: Female
  Weight: 74 kg

DRUGS (2)
  1. SIMVASTATIN [Interacting]
     Active Substance: SIMVASTATIN
     Indication: Vascular disorder prophylaxis
     Route: 065
  2. VERAPAMIL [Interacting]
     Active Substance: VERAPAMIL HYDROCHLORIDE
     Indication: Hypertension
     Route: 065

REACTIONS (5)
  - Blood creatine phosphokinase increased [Recovered/Resolved]
  - Drug interaction [Unknown]
  - Rhabdomyolysis [Recovered/Resolved]
  - Drug-genetic interaction [Unknown]
  - Myopathy toxic [Recovered/Resolved]
